FAERS Safety Report 15944130 (Version 2)
Quarter: 2019Q1

REPORT INFORMATION
  Report Type: Report from Study
  Country: AT (occurrence: AT)
  Receive Date: 20190211
  Receipt Date: 20190212
  Transmission Date: 20190417
  Serious: Yes (Other)
  Sender: FDA-Public Use
  Company Number: AT-ROCHE-1897384

PATIENT
  Sex: Female

DRUGS (1)
  1. RITUXIMAB. [Suspect]
     Active Substance: RITUXIMAB
     Indication: MYASTHENIA GRAVIS
     Route: 042

REACTIONS (10)
  - Enteritis [Unknown]
  - Infusion related reaction [Unknown]
  - Respiratory tract infection [Unknown]
  - Pain [Unknown]
  - Alopecia areata [Unknown]
  - Erysipelas [Unknown]
  - Cholecystitis [Unknown]
  - Headache [Unknown]
  - Herpes zoster [Unknown]
  - Mental disorder [Unknown]
